FAERS Safety Report 13536320 (Version 3)
Quarter: 2018Q3

REPORT INFORMATION
  Report Type: Spontaneous
  Country: US (occurrence: US)
  Receive Date: 20170511
  Receipt Date: 20180921
  Transmission Date: 20181010
  Serious: No
  Sender: FDA-Public Use
  Company Number: US-PFIZER INC-2017204207

PATIENT
  Age: 38 Year
  Sex: Female

DRUGS (4)
  1. IBRANCE [Suspect]
     Active Substance: PALBOCICLIB
     Dosage: 125 MG, CYCLIC (DAYS 1?21)
     Route: 048
     Dates: start: 20170508
  2. TAMOXIFEN [Concomitant]
     Active Substance: TAMOXIFEN
     Dosage: UNK
  3. IBRANCE [Suspect]
     Active Substance: PALBOCICLIB
     Indication: BREAST CANCER
     Dosage: 125 MG, DAILY
     Route: 048
     Dates: start: 20170330
  4. IBRANCE [Suspect]
     Active Substance: PALBOCICLIB
     Dosage: 125 MG, CYCLIC (QDX 3 WEEKS THEN OFF 7 DAYS)
     Route: 048
     Dates: start: 20170403

REACTIONS (5)
  - Diarrhoea [Unknown]
  - Product use in unapproved indication [Unknown]
  - Fatigue [Unknown]
  - Decreased appetite [Unknown]
  - Alopecia [Unknown]

NARRATIVE: CASE EVENT DATE: 20170330
